FAERS Safety Report 5580168-4 (Version None)
Quarter: 2007Q4

REPORT INFORMATION
  Report Type: 
  Country: None (occurrence: None)
  Receive Date: 20071227
  Receipt Date: 20071227
  Transmission Date: 20080405
  Serious: Yes (Other)
  Sender: FDA-Public Use
  Company Number: None

PATIENT
  Sex: Female

DRUGS (1)
  1. SULFAMETHOXAZOLE AND TRIMETHOPRIM [Suspect]
     Indication: INFECTION
     Dosage: 800MG/160MG BID PO
     Route: 048
     Dates: start: 20071105, end: 20071108

REACTIONS (1)
  - RASH ERYTHEMATOUS [None]
